FAERS Safety Report 7677111-0 (Version None)
Quarter: 2011Q3

REPORT INFORMATION
  Report Type: 
  Country: None (occurrence: None)
  Receive Date: 20110811
  Receipt Date: 20110803
  Transmission Date: 20111222
  Serious: Yes (Hospitalization)
  Sender: FDA-Public Use
  Company Number: US-ROCHE-795257

PATIENT
  Age: 63 Year
  Sex: Female
  Weight: 51.8 kg

DRUGS (1)
  1. INVIRASE [Suspect]
     Route: 048

REACTIONS (2)
  - MENTAL STATUS CHANGES [None]
  - CEREBROVASCULAR ACCIDENT [None]
